FAERS Safety Report 6367937-8 (Version None)
Quarter: 2009Q3

REPORT INFORMATION
  Report Type: 
  Country: None (occurrence: None)
  Receive Date: 20090922
  Receipt Date: 20090108
  Transmission Date: 20100115
  Serious: No
  Sender: FDA-Public Use
  Company Number: A0763271A

PATIENT
  Sex: Female

DRUGS (1)
  1. SEREVENT [Suspect]
     Indication: DRUG USE FOR UNKNOWN INDICATION
     Dosage: 1PUFF SINGLE DOSE
     Dates: start: 20081209

REACTIONS (7)
  - ADVERSE REACTION [None]
  - EYE PRURITUS [None]
  - LACRIMATION INCREASED [None]
  - LIP SWELLING [None]
  - LOCAL SWELLING [None]
  - PRURITUS [None]
  - SKIN WARM [None]
